FAERS Safety Report 8790787 (Version 1)
Quarter: 2012Q4

REPORT INFORMATION
  Report Type: Spontaneous
  Country: US (occurrence: None)
  Receive Date: 20120913
  Receipt Date: 20120913
  Transmission Date: 20130627
  Serious: No
  Sender: FDA-Public Use
  Company Number: None

PATIENT
  Age: 83 Year
  Sex: Female
  Weight: 65.77 kg

DRUGS (3)
  1. OMEPRAZOLE [Concomitant]
  2. AMOXICILLIN [Suspect]
  3. CLARITHROMYCIN [Concomitant]

REACTIONS (9)
  - Dysgraphia [None]
  - Balance disorder [None]
  - Pruritus [None]
  - Oedema peripheral [None]
  - Chromaturia [None]
  - Memory impairment [None]
  - Helicobacter infection [None]
  - Nervousness [None]
  - Tremor [None]
